FAERS Safety Report 5080765-9 (Version None)
Quarter: 2006Q3

REPORT INFORMATION
  Report Type: 
  Country: None (occurrence: None)
  Receive Date: 20060810
  Receipt Date: 20060706
  Transmission Date: 20061208
  Serious: Yes (Hospitalization, Disabling, Other)
  Sender: FDA-Public Use
  Company Number: 2006088661

PATIENT
  Age: 27 Year
  Sex: Female

DRUGS (21)
  1. DELTACORTRIL [Suspect]
     Indication: LEUKOCYTOCLASTIC VASCULITIS
     Dosage: 40 MG (40 MG, 1 IN 1 D), ORAL
     Route: 048
     Dates: start: 19970709, end: 19990101
  2. DICLOFENAC SODIUM [Concomitant]
  3. CYTOTEC [Concomitant]
  4. LIBRIUM [Concomitant]
  5. INDOMETHACIN [Concomitant]
  6. CILEST (ETHINYLESTRADIOL, NORGESTIMATE) [Concomitant]
  7. CIMELDINE (CIMETIDINE) [Concomitant]
  8. HALCION [Concomitant]
  9. DISTALGESIC (DEXTROPROPOXYPHENE HYDROCHLORIDE, PARACETAMOL) [Concomitant]
  10. CLONAMP (AMPILCILLIN) [Concomitant]
  11. DALMANE [Concomitant]
  12. NAPROSYN [Concomitant]
  13. ACETAMINOPHEN [Concomitant]
  14. LACTULOSE [Concomitant]
  15. LOSEC (OMEPRAZOLE) [Concomitant]
  16. FRUMIL (AMILORIDE HYDROCHLORIDE, FUROSEMIDE) [Concomitant]
  17. AULIN (NIMESULIDE) [Concomitant]
  18. FLOXACILLIN SODIUM [Concomitant]
  19. CEFRADINE (CEFRADINE) [Concomitant]
  20. CALVEPEN (PHENOXYMETHYLPENICILLIN CALCIUM) [Concomitant]
  21. OROVITE (ASCORBIC ACID, NICOTINAMIDE, PYRIDOXINE HYDROCHLORIDE, RIBOFL [Concomitant]

REACTIONS (21)
  - BLOOD THYROID STIMULATING HORMONE INCREASED [None]
  - CELLULITIS [None]
  - CHOLANGITIS SCLEROSING [None]
  - CHONDROPATHY [None]
  - COLONIC STENOSIS [None]
  - CONDITION AGGRAVATED [None]
  - CUSHINGOID [None]
  - DEPRESSION [None]
  - DRUG DEPENDENCE [None]
  - DRUG WITHDRAWAL CONVULSIONS [None]
  - FALL [None]
  - GENERAL PHYSICAL HEALTH DETERIORATION [None]
  - INFLAMMATORY BOWEL DISEASE [None]
  - LEUKOCYTOCLASTIC VASCULITIS [None]
  - LOSS OF CONSCIOUSNESS [None]
  - ORAL CANDIDIASIS [None]
  - OSTEOCHONDROMA [None]
  - OSTEOCHONDROSIS [None]
  - OSTEONECROSIS [None]
  - RESPIRATORY TRACT INFECTION [None]
  - THYROXINE DECREASED [None]
